FAERS Safety Report 7542528-1 (Version None)
Quarter: 2011Q2

REPORT INFORMATION
  Report Type: 
  Country: None (occurrence: None)
  Receive Date: 20110524
  Receipt Date: 20110406
  Transmission Date: 20111010
  Serious: No
  Sender: FDA-Public Use
  Company Number: 016953

PATIENT
  Sex: Female

DRUGS (4)
  1. ENTOCORT EC [Suspect]
     Indication: CROHN'S DISEASE
     Dosage: 400 MG 1X/MONTH SUBCUTANEOUS
     Route: 058
  2. ENTOCORT EC [Suspect]
     Indication: CROHN'S DISEASE
     Dosage: TAPERD DOSE
  3. ENTOCORT EC [Suspect]
     Indication: CROHN'S DISEASE
     Dosage: TAPERD
  4. CIMZIA [Suspect]
     Indication: CROHN'S DISEASE
     Dosage: 400 MG 1X/28 DAYS SUBCUTANEOUS
     Route: 058
     Dates: start: 20090105

REACTIONS (5)
  - ABDOMINAL PAIN [None]
  - MIGRAINE [None]
  - DEPRESSION [None]
  - HEADACHE [None]
  - DIARRHOEA [None]
